FAERS Safety Report 4739210-2 (Version None)
Quarter: 2005Q3

REPORT INFORMATION
  Report Type: 
  Country: None (occurrence: None)
  Receive Date: 20050810
  Receipt Date: 20050520
  Transmission Date: 20060218
  Serious: No
  Sender: FDA-Public Use
  Company Number: US-GLAXOSMITHKLINE-A0559579A

PATIENT
  Age: 60 Year
  Sex: Female

DRUGS (8)
  1. PAXIL CR [Suspect]
     Indication: DEPRESSION
     Dosage: 25MG PER DAY
     Route: 048
     Dates: start: 20000101, end: 20050411
  2. PAXIL [Suspect]
  3. DILTIA XT [Concomitant]
  4. MAXZIDE [Concomitant]
  5. SYNTHROID [Concomitant]
  6. ZYRTEC [Concomitant]
  7. ACIPHEX [Concomitant]
  8. AMBIEN [Concomitant]

REACTIONS (6)
  - BLOOD PRESSURE INCREASED [None]
  - CRYING [None]
  - FEELING JITTERY [None]
  - HEART RATE INCREASED [None]
  - HYPERVENTILATION [None]
  - PANIC ATTACK [None]
